FAERS Safety Report 8321502-1 (Version None)
Quarter: 2012Q2

REPORT INFORMATION
  Report Type: 
  Country: None (occurrence: None)
  Receive Date: 20120430
  Receipt Date: 20120430
  Transmission Date: 20120825
  Serious: Yes (Hospitalization, Disabling)
  Sender: FDA-Public Use
  Company Number: None

PATIENT
  Sex: Female
  Weight: 63.502 kg

DRUGS (1)
  1. CIMZIA [Suspect]
     Indication: RHEUMATOID ARTHRITIS
     Dosage: 200MG/ML X 2
     Route: 058
     Dates: start: 20120307, end: 20120419

REACTIONS (5)
  - DYSPNOEA [None]
  - URTICARIA [None]
  - ERYTHEMA [None]
  - FEELING HOT [None]
  - PALPITATIONS [None]
